FAERS Safety Report 8022603-8 (Version None)
Quarter: 2012Q1

REPORT INFORMATION
  Report Type: 
  Country: None (occurrence: None)
  Receive Date: 20120104
  Receipt Date: 20120103
  Transmission Date: 20120608
  Serious: Yes (Hospitalization)
  Sender: FDA-Public Use
  Company Number: US-GLAXOSMITHKLINE-B0754661A

PATIENT
  Age: 70 Year
  Sex: Male
  Weight: 133.6 kg

DRUGS (6)
  1. HYDROCHLOROTHIAZIDE [Concomitant]
  2. AVANDIA [Suspect]
     Indication: DIABETES MELLITUS
     Dosage: 4MG PER DAY
     Route: 048
     Dates: start: 20060207, end: 20070501
  3. ALTACE [Concomitant]
  4. DIOVAN [Concomitant]
  5. LABETALOL HCL [Concomitant]
  6. GLUCOVANCE [Concomitant]

REACTIONS (3)
  - CEREBROVASCULAR ACCIDENT [None]
  - BLINDNESS [None]
  - MACULAR OEDEMA [None]
